FAERS Safety Report 18529126 (Version 1)
Quarter: 2020Q4

REPORT INFORMATION
  Report Type: Spontaneous
  Country: BR (occurrence: BR)
  Receive Date: 20201120
  Receipt Date: 20201120
  Transmission Date: 20210114
  Serious: Yes (Life-Threatening, Other)
  Sender: FDA-Public Use
  Company Number: BR-TAKEDA-2020TUS051187

PATIENT
  Age: 44 Year
  Sex: Male
  Weight: 87 kg

DRUGS (1)
  1. DEXILANT [Suspect]
     Active Substance: DEXLANSOPRAZOLE
     Indication: GASTROOESOPHAGEAL REFLUX DISEASE
     Dosage: 30 MILLIGRAM, QD
     Route: 048
     Dates: start: 20201104, end: 20201114

REACTIONS (5)
  - Dyspnoea [Unknown]
  - Abdominal pain upper [Unknown]
  - Tachycardia [Unknown]
  - Near death experience [Unknown]
  - Off label use [Unknown]

NARRATIVE: CASE EVENT DATE: 20201104
